FAERS Safety Report 6522033-1 (Version None)
Quarter: 2009Q4

REPORT INFORMATION
  Report Type: 
  Country: None (occurrence: None)
  Receive Date: 20091224
  Receipt Date: 20091221
  Transmission Date: 20100525
  Serious: Yes (Other)
  Sender: FDA-Public Use
  Company Number: 2009AC000525

PATIENT
  Age: 54 Year
  Sex: Female

DRUGS (11)
  1. DIGOXIN [Suspect]
     Dosage: 0.125 MG; QD; PO
     Route: 048
  2. AVANDIA [Concomitant]
  3. PLAVIX [Concomitant]
  4. ASPIRIN [Concomitant]
  5. ZOLOFT [Concomitant]
  6. DILEX G [Concomitant]
  7. LORAZEPAM [Concomitant]
  8. ADVAIR DISKUS 100/50 [Concomitant]
  9. CEPHADYN [Concomitant]
  10. TRICOR [Concomitant]
  11. NITROGLYCERIN [Concomitant]

REACTIONS (4)
  - ANXIETY [None]
  - ECONOMIC PROBLEM [None]
  - MULTIPLE INJURIES [None]
  - PAIN [None]
